FAERS Safety Report 22110029 (Version 1)
Quarter: 2023Q1

REPORT INFORMATION
  Report Type: Spontaneous
  Country: US (occurrence: US)
  Receive Date: 20230317
  Receipt Date: 20230317
  Transmission Date: 20230418
  Serious: Yes (Other)
  Sender: FDA-Public Use
  Company Number: US-PFIZER INC-PV202300015842

PATIENT
  Age: 70 Year
  Sex: Male

DRUGS (2)
  1. MEKTOVI [Suspect]
     Active Substance: BINIMETINIB
     Dosage: 30 MG, 2X/DAY
     Route: 048
  2. BRAFTOVI [Concomitant]
     Active Substance: ENCORAFENIB
     Dosage: 225 MG, DAILY

REACTIONS (2)
  - Dementia [Unknown]
  - Product prescribing error [Unknown]
